FAERS Safety Report 7241116-4 (Version None)
Quarter: 2011Q1

REPORT INFORMATION
  Report Type: 
  Country: None (occurrence: None)
  Receive Date: 20110113
  Receipt Date: 20101229
  Transmission Date: 20110831
  Serious: Yes (Hospitalization)
  Sender: FDA-Public Use
  Company Number: WAES 1012USA04375

PATIENT
  Age: 46 Year
  Sex: Male
  Weight: 98.8842 kg

DRUGS (1)
  1. ISENTRESS [Suspect]
     Indication: HIV INFECTION
     Dosage: 400 MG/BID/PO
     Route: 048
     Dates: start: 20100202, end: 20101231

REACTIONS (8)
  - FALL [None]
  - RENAL FAILURE ACUTE [None]
  - ANAEMIA [None]
  - PAIN [None]
  - NORMAL PRESSURE HYDROCEPHALUS [None]
  - SYNCOPE [None]
  - FEMUR FRACTURE [None]
  - CEREBRAL VENTRICLE DILATATION [None]
